FAERS Safety Report 22911350 (Version 4)
Quarter: 2024Q2

REPORT INFORMATION
  Report Type: Spontaneous
  Country: US (occurrence: US)
  Receive Date: 20230906
  Receipt Date: 20240604
  Transmission Date: 20240717
  Serious: No
  Sender: FDA-Public Use
  Company Number: US-BRISTOL-MYERS SQUIBB COMPANY-2023-125747

PATIENT
  Age: 56 Year
  Sex: Female
  Weight: 62.14 kg

DRUGS (3)
  1. REVLIMID [Suspect]
     Active Substance: LENALIDOMIDE
     Indication: Plasma cell myeloma
     Dosage: FREQ-3 WEEKS ON AND 1 WEEK OFF
     Route: 048
  2. REVLIMID [Suspect]
     Active Substance: LENALIDOMIDE
     Dosage: FREQ-3 WEEKS ON AND 1 WEEK OFF
     Route: 048
  3. REVLIMID [Suspect]
     Active Substance: LENALIDOMIDE
     Route: 048

REACTIONS (3)
  - Constipation [Unknown]
  - White blood cell count decreased [Unknown]
  - Full blood count decreased [Unknown]
